FAERS Safety Report 4547608-0 (Version None)
Quarter: 2004Q4

REPORT INFORMATION
  Report Type: 
  Country: None (occurrence: None)
  Receive Date: 20041223
  Receipt Date: 20041021
  Transmission Date: 20050328
  Serious: No
  Sender: FDA-Public Use
  Company Number: US-JNJFOC-20041007798

PATIENT
  Age: 31 Year
  Sex: Female

DRUGS (5)
  1. ORTHO EVRA [Suspect]
     Indication: CONTRACEPTION
     Dosage: 1 DOSE(S), 3 IN 4 WEEK, TRANSDERMAL
     Route: 062
     Dates: start: 20041003
  2. AMOXICILLIN [Concomitant]
  3. ANTIHISTAMINE [Concomitant]
  4. COUGH MEDICINE (COUGH AND COLD PREPARATIONS) [Concomitant]
  5. TYLENOL #2 (PANADEINE CO) [Concomitant]

REACTIONS (3)
  - DENTAL OPERATION [None]
  - METRORRHAGIA [None]
  - PREMENSTRUAL SYNDROME [None]
